FAERS Safety Report 4972599-8 (Version None)
Quarter: 2006Q1

REPORT INFORMATION
  Report Type: 
  Country: None (occurrence: None)
  Receive Date: 20060216
  Receipt Date: 20051130
  Transmission Date: 20060701
  Serious: No
  Sender: FDA-Public Use
  Company Number: TPA2005A01588

PATIENT
  Age: 53 Year
  Sex: Male
  Weight: 65.7716 kg

DRUGS (1)
  1. ROZEREM [Suspect]
     Indication: INSOMNIA
     Dosage: 8 MG, QHS,  PER ORAL
     Route: 048
     Dates: start: 20051129

REACTIONS (1)
  - SOMNOLENCE [None]
